FAERS Safety Report 5124116-X (Version None)
Quarter: 2006Q4

REPORT INFORMATION
  Report Type: 
  Country: None (occurrence: None)
  Receive Date: 20061010
  Receipt Date: 20060214
  Transmission Date: 20070319
  Serious: No
  Sender: FDA-Public Use
  Company Number: US-BRISTOL-MYERS SQUIBB COMPANY-13284054

PATIENT
  Age: 77 Year
  Sex: Female
  Weight: 52 kg

DRUGS (2)
  1. AVAPRO [Suspect]
     Dosage: STARTED ON 08-FEB-2006 OR 09-FEB-2006.
     Dates: start: 20060126
  2. SINGULAIR [Suspect]
     Dates: start: 20060201

REACTIONS (1)
  - ALOPECIA [None]
